FAERS Safety Report 7350132-3 (Version None)
Quarter: 2011Q1

REPORT INFORMATION
  Report Type: 
  Country: None (occurrence: None)
  Receive Date: 20110314
  Receipt Date: 20110307
  Transmission Date: 20110831
  Serious: Yes (Hospitalization)
  Sender: FDA-Public Use
  Company Number: A0916968A

PATIENT
  Sex: Female

DRUGS (6)
  1. LAMICTAL [Suspect]
     Dosage: 200MG THREE TIMES PER DAY
     Route: 048
  2. PLAVIX [Concomitant]
  3. DIOVAN [Concomitant]
  4. METOPROLOL [Concomitant]
  5. KLONOPIN [Concomitant]
  6. KEPPRA [Concomitant]

REACTIONS (3)
  - MYOCARDIAL INFARCTION [None]
  - CONVULSION [None]
  - AMNESIA [None]
